FAERS Safety Report 7527423-6 (Version None)
Quarter: 2011Q2

REPORT INFORMATION
  Report Type: 
  Country: None (occurrence: None)
  Receive Date: 20110603
  Receipt Date: 20110524
  Transmission Date: 20111010
  Serious: Yes (Death)
  Sender: FDA-Public Use
  Company Number: JPI-P-003207

PATIENT
  Age: 51 Year
  Sex: Male

DRUGS (3)
  1. XYREM [Suspect]
     Indication: PRODUCT USED FOR UNKNOWN INDICATION
     Dosage: 4.5 GM (2.25 GM, 2 IN 1 D), ORAL; 15 GM (7.5 GM, 2 IN 1 D), ORAL; 14 GM (7 GM, 2 IN 1 D), ORAL
     Route: 048
     Dates: start: 20050602
  2. XYREM [Suspect]
     Indication: PRODUCT USED FOR UNKNOWN INDICATION
     Dosage: 4.5 GM (2.25 GM, 2 IN 1 D), ORAL; 15 GM (7.5 GM, 2 IN 1 D), ORAL; 14 GM (7 GM, 2 IN 1 D), ORAL
     Route: 048
     Dates: start: 20070201
  3. XYREM [Suspect]
     Indication: PRODUCT USED FOR UNKNOWN INDICATION
     Dosage: 4.5 GM (2.25 GM, 2 IN 1 D), ORAL; 15 GM (7.5 GM, 2 IN 1 D), ORAL; 14 GM (7 GM, 2 IN 1 D), ORAL
     Route: 048
     Dates: start: 20050915

REACTIONS (1)
  - DEATH [None]
